FAERS Safety Report 11856172 (Version 1)
Quarter: 2015Q4

REPORT INFORMATION
  Report Type: Spontaneous
  Country: US (occurrence: None)
  Receive Date: 20151218
  Receipt Date: 20151218
  Transmission Date: 20160305
  Serious: Yes (Disabling)
  Sender: FDA-Public Use
  Company Number: None

PATIENT
  Age: 59 Year
  Sex: Female
  Weight: 83.92 kg

DRUGS (10)
  1. MULTI-VIT [Concomitant]
     Active Substance: VITAMINS
  2. INVOKANA [Suspect]
     Active Substance: CANAGLIFLOZIN
     Indication: DIABETES MELLITUS INADEQUATE CONTROL
     Route: 048
  3. LANTUS [Concomitant]
     Active Substance: INSULIN GLARGINE
  4. METFORMIN [Concomitant]
     Active Substance: METFORMIN HYDROCHLORIDE
  5. PROBIOTIC [Concomitant]
     Active Substance: PROBIOTICS NOS
  6. MILK THISTLE [Concomitant]
     Active Substance: MILK THISTLE
  7. VITAMIN D [Concomitant]
     Active Substance: CHOLECALCIFEROL
  8. ROSAVYN PLUS [Concomitant]
  9. RAMAPRIL [Concomitant]
  10. ZINC [Concomitant]
     Active Substance: ZINC\ZINC CHLORIDE

REACTIONS (2)
  - Drug ineffective [None]
  - Fungal infection [None]

NARRATIVE: CASE EVENT DATE: 20150111
